FAERS Safety Report 6419594-X (Version None)
Quarter: 2009Q4

REPORT INFORMATION
  Report Type: 
  Country: None (occurrence: None)
  Receive Date: 20091029
  Receipt Date: 20091020
  Transmission Date: 20100525
  Serious: Yes (Life-Threatening, Hospitalization)
  Sender: FDA-Public Use
  Company Number: CN-AVENTIS-200921768GDDC

PATIENT
  Age: 10 Year
  Sex: Male

DRUGS (3)
  1. CLAFORAN [Suspect]
     Indication: TRACHEITIS
     Route: 041
     Dates: start: 20090801, end: 20090801
  2. AMBROXOL HYDROCHLORIDE [Concomitant]
     Indication: TRACHEITIS
     Route: 041
     Dates: start: 20090801, end: 20090801
  3. AZITHROMYCIN [Concomitant]
     Dosage: DOSE: UNK
     Dates: start: 20090801, end: 20090801

REACTIONS (5)
  - AGITATION [None]
  - ANAPHYLACTIC REACTION [None]
  - BLOOD PRESSURE DECREASED [None]
  - LARYNX IRRITATION [None]
  - PULMONARY HAEMORRHAGE [None]
